FAERS Safety Report 10506229 (Version 2)
Quarter: 2014Q4

REPORT INFORMATION
  Report Type: Report from Study
  Country: CZ (occurrence: CZ)
  Receive Date: 20141009
  Receipt Date: 20141009
  Transmission Date: 20150528
  Serious: Yes (Hospitalization)
  Sender: FDA-Public Use
  Company Number: CZ-ROCHE-1460199

PATIENT
  Age: 59 Year
  Sex: Male
  Weight: 102 kg

DRUGS (13)
  1. EUTHYROX [Concomitant]
     Active Substance: LEVOTHYROXINE SODIUM
     Indication: THYROIDECTOMY
     Route: 048
     Dates: start: 1996
  2. BETAMED (BETAXOLOL HYDROCHLORIDE) [Concomitant]
     Indication: HYPERTENSION
     Route: 048
     Dates: start: 1998
  3. TRALGIT [Concomitant]
     Active Substance: TRAMADOL
     Indication: PAIN
     Route: 048
  4. DITHIADEN [Concomitant]
     Active Substance: BISULEPIN
     Indication: RASH PRURITIC
     Route: 048
     Dates: start: 20130912
  5. VEMURAFENIB [Suspect]
     Active Substance: VEMURAFENIB
     Indication: MALIGNANT MELANOMA
     Route: 048
     Dates: start: 20130829, end: 20140907
  6. IBALGIN [Concomitant]
     Active Substance: IBUPROFEN
     Indication: PAIN
     Route: 048
  7. PREDNISONE. [Concomitant]
     Active Substance: PREDNISONE
     Indication: RASH PRURITIC
     Route: 048
     Dates: start: 20130912
  8. OMNIC TOCAS [Concomitant]
     Indication: BENIGN PROSTATIC HYPERPLASIA
     Route: 048
     Dates: start: 20140304
  9. COBIMETINIB [Suspect]
     Active Substance: COBIMETINIB
     Indication: MALIGNANT MELANOMA
     Route: 048
     Dates: start: 20130829, end: 20140903
  10. AMPRILAN [Concomitant]
     Active Substance: RAMIPRIL
     Indication: HYPERTENSION
     Route: 048
     Dates: start: 1998
  11. MILURIT [Concomitant]
     Active Substance: ALLOPURINOL
     Indication: GOUT
     Route: 048
     Dates: start: 201301
  12. FRAXIPARINE [Concomitant]
     Active Substance: NADROPARIN CALCIUM
     Indication: THROMBOSIS
     Route: 058
     Dates: start: 20140603
  13. BELODERM [Concomitant]
     Active Substance: BETAMETHASONE DIPROPIONATE
     Indication: RASH PRURITIC
     Route: 061
     Dates: start: 20130912

REACTIONS (1)
  - Colitis [Recovered/Resolved]

NARRATIVE: CASE EVENT DATE: 20140908
